FAERS Safety Report 6621510-2 (Version None)
Quarter: 2010Q1

REPORT INFORMATION
  Report Type: 
  Country: None (occurrence: None)
  Receive Date: 20100217
  Receipt Date: 20100208
  Transmission Date: 20100710
  Serious: Yes (Other)
  Sender: FDA-Public Use
  Company Number: 10-058

PATIENT
  Age: 33 Year
  Sex: Female

DRUGS (1)
  1. ALEVE [Suspect]
     Indication: HEADACHE
     Dosage: 440 MG, DAILY, ORAL
     Route: 048
     Dates: start: 20100129, end: 20100129

REACTIONS (6)
  - DYSPNOEA [None]
  - GASTROENTERITIS [None]
  - MIGRAINE [None]
  - SWOLLEN TONGUE [None]
  - URTICARIA [None]
  - WEIGHT DECREASED [None]
